FAERS Safety Report 4845216-5 (Version None)
Quarter: 2005Q4

REPORT INFORMATION
  Report Type: 
  Country: None (occurrence: None)
  Receive Date: 20051205
  Receipt Date: 20051128
  Transmission Date: 20060501
  Serious: Yes (Other)
  Sender: FDA-Public Use
  Company Number: GB-AVENTIS-200520591GDDC

PATIENT
  Age: 26 Year
  Sex: Female

DRUGS (3)
  1. METRONIDAZOLE [Suspect]
     Indication: DYSPAREUNIA
     Dosage: DOSE: 400 MG 3 TIMES DAILY
     Route: 048
     Dates: start: 20051021, end: 20051028
  2. CLOTRIMAZOLE [Concomitant]
     Indication: DYSPAREUNIA
     Dosage: DOSE: 500 MG
     Route: 067
     Dates: start: 20051021, end: 20051021
  3. ENGERIX-B [Concomitant]
     Dosage: DOSE: 20 MCG
     Dates: start: 20050818, end: 20050818

REACTIONS (1)
  - TONGUE BLACK HAIRY [None]
